FAERS Safety Report 7714375-9 (Version None)
Quarter: 2011Q3

REPORT INFORMATION
  Report Type: 
  Country: None (occurrence: None)
  Receive Date: 20110829
  Receipt Date: 20110104
  Transmission Date: 20111222
  Serious: No
  Sender: FDA-Public Use
  Company Number: US-BAYER-2011-002205

PATIENT
  Age: 31 Year
  Sex: Female

DRUGS (1)
  1. MIRENA [Suspect]
     Indication: CONTRACEPTION
     Dosage: 20 MCG/24HR, UNK
     Route: 015

REACTIONS (6)
  - ABDOMINAL DISTENSION [None]
  - MOOD SWINGS [None]
  - ABDOMINAL DISCOMFORT [None]
  - PARAESTHESIA [None]
  - BACK PAIN [None]
  - SENSATION OF HEAVINESS [None]
